FAERS Safety Report 9345385 (Version 2)
Quarter: 2013Q3

REPORT INFORMATION
  Report Type: Report from Study
  Country: NL (occurrence: NL)
  Receive Date: 20130613
  Receipt Date: 20130731
  Transmission Date: 20140515
  Serious: Yes (Hospitalization)
  Sender: FDA-Public Use
  Company Number: NL-ROCHE-1231542

PATIENT
  Age: 69 Year
  Sex: Female

DRUGS (5)
  1. CAPECITABINE [Suspect]
     Indication: GASTRIC CANCER
     Dosage: CUMULATIVE DOSE IS 3600 MG X 12 DATE OF LAST TREAMTNET 28/MAY/2013
     Route: 048
     Dates: start: 20130517
  2. EPIRUBICIN HYDROCHLORIDE [Suspect]
     Indication: GASTRIC CANCER
     Dosage: CUMULATIVE DOSE 89 MG, DATE OF LAST TREATMENT 17/MAY/2013
     Route: 042
     Dates: start: 20130517
  3. CISPLATIN [Suspect]
     Indication: GASTRIC CANCER
     Dosage: CUMULATIVE DOSE PG MG, DATE OF LAST TREATMENT 17/MAY/2013
     Route: 042
     Dates: start: 20130517
  4. METOCLOPRAMIDE [Concomitant]
     Route: 065
     Dates: start: 20130517
  5. FERROUS FUMARATE [Concomitant]

REACTIONS (4)
  - Necrotising oesophagitis [Recovering/Resolving]
  - Febrile neutropenia [Recovered/Resolved]
  - Vomiting [Recovered/Resolved]
  - Dehydration [Recovered/Resolved]
